FAERS Safety Report 7274309-0 (Version None)
Quarter: 2011Q1

REPORT INFORMATION
  Report Type: 
  Country: None (occurrence: None)
  Receive Date: 20110131
  Receipt Date: 20110131
  Transmission Date: 20110831
  Serious: No
  Sender: FDA-Public Use
  Company Number: None

PATIENT
  Sex: Female
  Weight: 81.5567 kg

DRUGS (1)
  1. CELEXA [Suspect]
     Indication: ANXIETY DISORDER
     Dosage: 40 MG DAILY ORAL
     Route: 048
     Dates: start: 20060101

REACTIONS (1)
  - AGITATION [None]
